FAERS Safety Report 19124242 (Version 1)
Quarter: 2021Q2

REPORT INFORMATION
  Report Type: Spontaneous
  Country: US (occurrence: US)
  Receive Date: 20210413
  Receipt Date: 20210413
  Transmission Date: 20210717
  Serious: No
  Sender: FDA-Public Use
  Company Number: US-AMGEN-USASP2021054424

PATIENT
  Sex: Male

DRUGS (2)
  1. PROCRIT [Suspect]
     Active Substance: ERYTHROPOIETIN
     Indication: NEOPLASM MALIGNANT
  2. PROCRIT [Suspect]
     Active Substance: ERYTHROPOIETIN
     Indication: CHRONIC KIDNEY DISEASE
     Dosage: UNK
     Route: 065

REACTIONS (2)
  - Nausea [Unknown]
  - Blood potassium increased [Unknown]
